FAERS Safety Report 4976500-2 (Version None)
Quarter: 2006Q2

REPORT INFORMATION
  Report Type: 
  Country: None (occurrence: None)
  Receive Date: 20060412
  Receipt Date: 20060331
  Transmission Date: 20061013
  Serious: Yes (Other)
  Sender: FDA-Public Use
  Company Number: 2006045162

PATIENT
  Age: 59 Year
  Sex: Male

DRUGS (1)
  1. LISTERINE ANTISEPTIC MOUTHWASH (MENTHOL, METHYL SALICYLATE, EUCALYPTOL [Suspect]
     Dosage: 1/2 A BOTTLE ONCE, ORAL
     Route: 048
     Dates: start: 20060331, end: 20060331

REACTIONS (1)
  - MEDICATION ERROR [None]
